FAERS Safety Report 24153757 (Version 2)
Quarter: 2024Q3

REPORT INFORMATION
  Report Type: Spontaneous
  Country: GB (occurrence: GB)
  Receive Date: 20240730
  Receipt Date: 20240813
  Transmission Date: 20241017
  Serious: No
  Sender: IPSEN
  Company Number: GB-IPSEN Group, Research and Development-2024-14655

PATIENT
  Age: 35 Year
  Sex: Male
  Weight: 103 kg

DRUGS (2)
  1. DYSPORT [Suspect]
     Active Substance: ABOBOTULINUMTOXINA
     Indication: Muscle spasticity
     Dosage: ( 700 EACH LEG SPLIT INTO GASTROC AND SOLEUS)
     Route: 030
     Dates: start: 20240701, end: 20240701
  2. BACLOFEN [Concomitant]
     Active Substance: BACLOFEN
     Indication: Muscle spasticity
     Dosage: 15MG AM

REACTIONS (5)
  - Injection site swelling [Recovering/Resolving]
  - Injection site discomfort [Recovering/Resolving]
  - Muscle tightness [Recovering/Resolving]
  - Injection site pain [Recovering/Resolving]
  - Fatigue [Recovering/Resolving]

NARRATIVE: CASE EVENT DATE: 20240701
